FAERS Safety Report 20005684 (Version 1)
Quarter: 2021Q4

REPORT INFORMATION
  Report Type: Spontaneous
  Country: US (occurrence: US)
  Receive Date: 20211028
  Receipt Date: 20211028
  Transmission Date: 20220303
  Serious: Yes (Other)
  Sender: FDA-Public Use
  Company Number: US-GLAXOSMITHKLINE-US2021GSK223751

PATIENT
  Sex: Female

DRUGS (10)
  1. ZANTAC [Suspect]
     Active Substance: RANITIDINE HYDROCHLORIDE
     Indication: Oesophageal spasm
     Dosage: UNK UNK, QD
     Route: 065
     Dates: start: 200503, end: 201712
  2. ZANTAC [Suspect]
     Active Substance: RANITIDINE HYDROCHLORIDE
     Indication: Oesophageal spasm
     Dosage: UNK UNK, QD
     Route: 065
     Dates: start: 200503, end: 200503
  3. ZANTAC [Suspect]
     Active Substance: RANITIDINE HYDROCHLORIDE
     Indication: Oesophageal spasm
     Dosage: UNK, QD
     Route: 065
     Dates: start: 200503, end: 200503
  4. ZANTAC [Suspect]
     Active Substance: RANITIDINE HYDROCHLORIDE
     Indication: Oesophageal spasm
     Dosage: 15 MG/ML, QD
     Route: 065
     Dates: start: 200503, end: 200503
  5. RANITIDINE HYDROCHLORIDE [Suspect]
     Active Substance: RANITIDINE HYDROCHLORIDE
     Indication: Oesophageal spasm
     Dosage: UNK UNK, QD
     Route: 065
     Dates: start: 200503, end: 201712
  6. RANITIDINE HYDROCHLORIDE [Suspect]
     Active Substance: RANITIDINE HYDROCHLORIDE
     Indication: Oesophageal spasm
     Dosage: UNK UNK, QD
     Route: 065
     Dates: start: 200503, end: 201712
  7. RANITIDINE HYDROCHLORIDE [Suspect]
     Active Substance: RANITIDINE HYDROCHLORIDE
     Indication: Oesophageal spasm
     Dosage: UNK UNK, QD
     Route: 065
     Dates: start: 200503, end: 201712
  8. RANITIDINE [Suspect]
     Active Substance: RANITIDINE
     Indication: Oesophageal spasm
     Dosage: UNK UNK, QD
     Route: 065
     Dates: start: 200503, end: 201712
  9. RANITIDINE [Suspect]
     Active Substance: RANITIDINE
     Indication: Oesophageal spasm
     Dosage: UNK UNK, QD
     Route: 065
     Dates: start: 200503, end: 201712
  10. RANITIDINE HYDROCHLORIDE [Suspect]
     Active Substance: RANITIDINE HYDROCHLORIDE
     Indication: Oesophageal spasm
     Dosage: UNK, QD
     Route: 065
     Dates: start: 200503, end: 201712

REACTIONS (1)
  - Ovarian cancer [Unknown]
